FAERS Safety Report 5370144-9 (Version None)
Quarter: 2007Q2

REPORT INFORMATION
  Report Type: 
  Country: None (occurrence: None)
  Receive Date: 20070614
  Receipt Date: 20070501
  Transmission Date: 20071010
  Serious: Yes (Hospitalization)
  Sender: FDA-Public Use
  Company Number: BDI-009469

PATIENT
  Age: 40 Year
  Sex: Female

DRUGS (2)
  1. MULTIHANCE [Suspect]
     Indication: NUCLEAR MAGNETIC RESONANCE IMAGING ABDOMINAL
     Dosage: 10 ML ONCE IV
     Route: 042
     Dates: start: 20070426, end: 20070426
  2. MULTIHANCE [Suspect]
     Indication: RENAL TRANSPLANT
     Dosage: 10 ML ONCE IV
     Route: 042
     Dates: start: 20070426, end: 20070426

REACTIONS (4)
  - DYSPHAGIA [None]
  - EYE PRURITUS [None]
  - LACRIMATION INCREASED [None]
  - SWOLLEN TONGUE [None]
